FAERS Safety Report 7355451-2 (Version None)
Quarter: 2011Q1

REPORT INFORMATION
  Report Type: 
  Country: None (occurrence: None)
  Receive Date: 20110316
  Receipt Date: 20110314
  Transmission Date: 20110831
  Serious: Yes (Life-Threatening, Hospitalization)
  Sender: FDA-Public Use
  Company Number: US-GENZYME-CAMP-1000299

PATIENT
  Sex: Male
  Weight: 2.8 kg

DRUGS (1)
  1. CAMPATH [Suspect]
     Indication: MULTIPLE SCLEROSIS
     Dosage: 12 MG, QDX5
     Route: 050
     Dates: start: 20080512, end: 20080516

REACTIONS (1)
  - THYROTOXIC CRISIS [None]
